FAERS Safety Report 16879357 (Version 1)
Quarter: 2019Q4

REPORT INFORMATION
  Report Type: Spontaneous
  Country: US (occurrence: US)
  Receive Date: 20191003
  Receipt Date: 20191003
  Transmission Date: 20200122
  Serious: Yes (Other)
  Sender: FDA-Public Use
  Company Number: PHEH2019US040149

PATIENT

DRUGS (14)
  1. GEMCITABINE. [Suspect]
     Active Substance: GEMCITABINE
     Indication: DIFFUSE LARGE B-CELL LYMPHOMA
     Dosage: UNK G, UNK
     Route: 065
     Dates: start: 201901
  2. GEMCITABINE. [Suspect]
     Active Substance: GEMCITABINE
     Dosage: 1 G, UNK
     Route: 065
     Dates: start: 20190729
  3. GEMCITABINE. [Suspect]
     Active Substance: GEMCITABINE
     Dosage: UNK, X2
     Route: 065
     Dates: start: 201902
  4. CYCLOPHOSPHAMIDE. [Suspect]
     Active Substance: CYCLOPHOSPHAMIDE
     Indication: DIFFUSE LARGE B-CELL LYMPHOMA
     Dosage: UNK
     Route: 065
     Dates: start: 201803, end: 201807
  5. CISPLATIN. [Suspect]
     Active Substance: CISPLATIN
     Dosage: UNK, X2
     Route: 065
     Dates: start: 201902
  6. ETOPOSIDE. [Suspect]
     Active Substance: ETOPOSIDE
     Indication: DIFFUSE LARGE B-CELL LYMPHOMA
     Dosage: UNK
     Route: 065
  7. DOXORUBICIN [Suspect]
     Active Substance: DOXORUBICIN
     Indication: DIFFUSE LARGE B-CELL LYMPHOMA
     Dosage: UNK
     Route: 065
     Dates: start: 201803, end: 201807
  8. RITUXIMAB. [Suspect]
     Active Substance: RITUXIMAB
     Indication: DIFFUSE LARGE B-CELL LYMPHOMA
     Dosage: UNK, X6
     Route: 065
     Dates: start: 201803, end: 201807
  9. VINCRISTINE [Suspect]
     Active Substance: VINCRISTINE
     Indication: DIFFUSE LARGE B-CELL LYMPHOMA
     Dosage: UNK
     Route: 065
     Dates: start: 201803, end: 201807
  10. CISPLATIN. [Suspect]
     Active Substance: CISPLATIN
     Indication: DIFFUSE LARGE B-CELL LYMPHOMA
     Dosage: UNK, X2
     Route: 065
     Dates: start: 201901
  11. MELPHALAN. [Suspect]
     Active Substance: MELPHALAN
     Indication: DIFFUSE LARGE B-CELL LYMPHOMA
     Dosage: UNK
     Route: 065
  12. DEXAMETHASONE. [Suspect]
     Active Substance: DEXAMETHASONE
     Dosage: UNK,X2
     Route: 065
     Dates: start: 201902
  13. PREDNISONE. [Suspect]
     Active Substance: PREDNISONE
     Indication: DIFFUSE LARGE B-CELL LYMPHOMA
     Dosage: UNK
     Route: 065
     Dates: start: 201803, end: 201807
  14. DEXAMETHASONE. [Suspect]
     Active Substance: DEXAMETHASONE
     Indication: DIFFUSE LARGE B-CELL LYMPHOMA
     Dosage: UNK,X2
     Route: 065
     Dates: start: 201901

REACTIONS (2)
  - Diffuse large B-cell lymphoma recurrent [Unknown]
  - Mediastinal mass [Unknown]

NARRATIVE: CASE EVENT DATE: 201901
